FAERS Safety Report 18647362 (Version 1)
Quarter: 2020Q4

REPORT INFORMATION
  Report Type: Spontaneous
  Country: TR (occurrence: TR)
  Receive Date: 20201222
  Receipt Date: 20201222
  Transmission Date: 20210114
  Serious: Yes (Other)
  Sender: FDA-Public Use
  Company Number: TR-LUPIN PHARMACEUTICALS INC.-2020-10658

PATIENT
  Age: 64 Year
  Sex: Male

DRUGS (3)
  1. SANDOSTATIN LAR DEPOT [Concomitant]
     Active Substance: OCTREOTIDE ACETATE
     Indication: PANCREATIC NEUROENDOCRINE TUMOUR
     Dosage: 20 MILLIGRAM
     Route: 065
     Dates: start: 201303, end: 201910
  2. IMATINIB MESYLATE. [Suspect]
     Active Substance: IMATINIB MESYLATE
     Indication: CHRONIC MYELOID LEUKAEMIA
     Dosage: 400 MILLIGRAM, QD, DISCONTINUED FOR 1.5 MONTHS AND READMINISTERED WITH ANTIEMETICS
     Route: 065
     Dates: start: 201903
  3. IMATINIB MESYLATE. [Suspect]
     Active Substance: IMATINIB MESYLATE
     Dosage: 400 MILLIGRAM, QD, DISCONTINUED FOR 1.5 MONTHS AND READMINISTERED WITH ANTIEMETICS
     Route: 065
     Dates: end: 201912

REACTIONS (2)
  - Vomiting [Unknown]
  - Nausea [Unknown]

NARRATIVE: CASE EVENT DATE: 201912
